FAERS Safety Report 19785560 (Version 1)
Quarter: 2021Q3

REPORT INFORMATION
  Report Type: Spontaneous
  Country: AU (occurrence: AU)
  Receive Date: 20210903
  Receipt Date: 20210903
  Transmission Date: 20211014
  Serious: No
  Sender: FDA-Public Use
  Company Number: AU-LUPIN PHARMACEUTICALS INC.-2021-16370

PATIENT
  Age: 52 Year
  Sex: Male

DRUGS (4)
  1. GABAPENTIN. [Concomitant]
     Active Substance: GABAPENTIN
     Indication: PENILE PAIN
     Dosage: 800 MILLIGRAM, TID
     Route: 048
  2. GABAPENTIN. [Concomitant]
     Active Substance: GABAPENTIN
     Indication: NEURALGIA
  3. OXYCODONE [Suspect]
     Active Substance: OXYCODONE
     Indication: PENILE PAIN
     Dosage: 40 MILLIGRAM  (13 BREAKTHROUGH DOSES IN 24 HOURS)
     Route: 048
  4. OXYCODONE [Suspect]
     Active Substance: OXYCODONE
     Indication: NEURALGIA

REACTIONS (1)
  - Drug ineffective [Unknown]
